FAERS Safety Report 22175572 (Version 1)
Quarter: 2023Q2

REPORT INFORMATION
  Report Type: Spontaneous
  Country: US (occurrence: None)
  Receive Date: 20230404
  Receipt Date: 20230404
  Transmission Date: 20230721
  Serious: Yes (Other)
  Sender: FDA-Public Use
  Company Number: None

PATIENT
  Age: 46 Year
  Sex: Female
  Weight: 98.3 kg

DRUGS (3)
  1. PACLITAXEL [Suspect]
     Active Substance: PACLITAXEL
     Indication: HER2 negative breast cancer
     Dosage: OTHER FREQUENCY : WEEKLY;?
     Route: 042
     Dates: start: 20230303
  2. KEYTRUDA [Concomitant]
     Active Substance: PEMBROLIZUMAB
     Dates: start: 20230303
  3. CARBOPLATIN [Concomitant]
     Active Substance: CARBOPLATIN
     Dates: start: 20230303

REACTIONS (5)
  - Infusion related reaction [None]
  - Nausea [None]
  - Ear congestion [None]
  - Flushing [None]
  - Therapy interrupted [None]

NARRATIVE: CASE EVENT DATE: 20230303
